FAERS Safety Report 8136953-8 (Version None)
Quarter: 2012Q1

REPORT INFORMATION
  Report Type: 
  Country: None (occurrence: None)
  Receive Date: 20120214
  Receipt Date: 20120209
  Transmission Date: 20120608
  Serious: Yes (Other)
  Sender: FDA-Public Use
  Company Number: SE-MERCK-1202SWE00017

PATIENT
  Age: 80 Year
  Sex: Female

DRUGS (5)
  1. ZOPICLONE [Concomitant]
     Route: 065
  2. OMEPRAZOLE [Concomitant]
     Route: 065
  3. CITALOPRAM [Concomitant]
     Route: 065
  4. PREDNISOLONE [Concomitant]
     Route: 048
  5. FOSAMAX [Suspect]
     Indication: OSTEOPOROSIS
     Route: 048
     Dates: end: 20110701

REACTIONS (1)
  - OSTEONECROSIS [None]
